FAERS Safety Report 4377102-1 (Version None)
Quarter: 2004Q2

REPORT INFORMATION
  Report Type: 
  Country: None (occurrence: None)
  Receive Date: 20040615
  Receipt Date: 20040607
  Transmission Date: 20050107
  Serious: Yes (Other)
  Sender: FDA-Public Use
  Company Number: 200411949JP

PATIENT
  Age: 71 Year
  Sex: Male

DRUGS (10)
  1. ALLEGRA [Suspect]
     Indication: ECZEMA
     Route: 048
     Dates: start: 20040506, end: 20040506
  2. NITROL [Concomitant]
     Route: 048
     Dates: start: 20010101
  3. ADALAT [Concomitant]
     Route: 048
     Dates: start: 20010101
  4. SIGMART [Concomitant]
     Route: 048
     Dates: start: 20010101
  5. SELBEX [Concomitant]
     Route: 048
     Dates: start: 20010101
  6. GLIMICRON [Concomitant]
     Route: 048
  7. GASTER [Concomitant]
     Route: 048
  8. ZYRTEC [Concomitant]
     Route: 048
     Dates: start: 20020101
  9. LOXONIN [Concomitant]
     Route: 048
  10. MUCOSTA [Concomitant]
     Route: 048

REACTIONS (3)
  - DERMATITIS EXFOLIATIVE [None]
  - SKIN FISSURES [None]
  - URTICARIA GENERALISED [None]
